FAERS Safety Report 8537623-4 (Version None)
Quarter: 2012Q3

REPORT INFORMATION
  Report Type: 
  Country: None (occurrence: None)
  Receive Date: 20120725
  Receipt Date: 20120712
  Transmission Date: 20120928
  Serious: No
  Sender: FDA-Public Use
  Company Number: US-ASTRAZENECA-2012SE48336

PATIENT
  Age: 80 Year
  Sex: Male
  Weight: 69.4 kg

DRUGS (3)
  1. PULMICORT FLEXHALER [Suspect]
     Dosage: 180 MCG 2 PUFFS BID
     Route: 055
  2. PULMICORT FLEXHALER [Suspect]
     Dosage: 1 PUFF BID
     Route: 055
  3. SYMBICORT [Suspect]
     Indication: ASTHMA
     Dosage: 160/4.5 MCG 2 PUFFS BID
     Route: 055
     Dates: start: 20100101

REACTIONS (4)
  - NASOPHARYNGITIS [None]
  - ASTHMA [None]
  - INTENTIONAL DRUG MISUSE [None]
  - DYSPHONIA [None]
